FAERS Safety Report 5094004-6 (Version None)
Quarter: 2006Q3

REPORT INFORMATION
  Report Type: 
  Country: None (occurrence: None)
  Receive Date: 20060728
  Receipt Date: 20060623
  Transmission Date: 20061208
  Serious: No
  Sender: FDA-Public Use
  Company Number: 254386

PATIENT
  Age: 64 Year
  Sex: Female
  Weight: 76.2 kg

DRUGS (10)
  1. LEVEMIR [Suspect]
     Indication: INSULIN-REQUIRING TYPE II DIABETES MELLITUS
     Dosage: 5 IU, QD, SUBCUTANEOUS
     Route: 058
     Dates: start: 20060620
  2. LIPITOR [Concomitant]
  3. TRICOR [Concomitant]
  4. AVANDIA [Concomitant]
  5. PRANDIN [Concomitant]
  6. METFORMIN HCL [Concomitant]
  7. NEIXUM (ESOMEPRAZOLE MAGNESIUM) [Concomitant]
  8. POTASSIUM (POTASSIUM) [Concomitant]
  9. IRON (IRON) [Concomitant]
  10. PROCRIT [Concomitant]

REACTIONS (2)
  - DIARRHOEA [None]
  - NAUSEA [None]
